FAERS Safety Report 16111852 (Version 1)
Quarter: 2019Q1

REPORT INFORMATION
  Report Type: Spontaneous
  Country: JP (occurrence: JP)
  Receive Date: 20190325
  Receipt Date: 20190325
  Transmission Date: 20190418
  Serious: Yes (Other)
  Sender: FDA-Public Use
  Company Number: JP-SA-2019SA074093

PATIENT
  Age: 72 Year
  Sex: Male

DRUGS (4)
  1. ELPLAT [Suspect]
     Active Substance: OXALIPLATIN
     Indication: COLON CANCER
     Dosage: UNK UNK, QD
     Route: 041
  2. VECTIBIX [Concomitant]
     Active Substance: PANITUMUMAB
  3. LEVOFOLINATE CALCIUM [Suspect]
     Active Substance: LEVOLEUCOVORIN CALCIUM
     Indication: COLON CANCER
     Dosage: UNK UNK, QD
  4. FLUOROURACIL. [Concomitant]
     Active Substance: FLUOROURACIL
     Route: 040

REACTIONS (1)
  - Pseudocirrhosis [Recovering/Resolving]
